FAERS Safety Report 7982125-7 (Version None)
Quarter: 2011Q4

REPORT INFORMATION
  Report Type: 
  Country: None (occurrence: None)
  Receive Date: 20111215
  Receipt Date: 20111213
  Transmission Date: 20120403
  Serious: No
  Sender: FDA-Public Use
  Company Number: US-PFIZER INC-2011304340

PATIENT
  Sex: Male
  Weight: 67 kg

DRUGS (8)
  1. SECONAL [Concomitant]
     Indication: STATUS EPILEPTICUS
     Dosage: UNK
  2. LYRICA [Suspect]
     Indication: INSOMNIA
  3. LYRICA [Suspect]
     Indication: ANXIETY
  4. DILAUDID [Concomitant]
     Dosage: UNK
  5. DIAZEPAM [Concomitant]
     Dosage: 10 MG, 2X/DAY
  6. LYRICA [Suspect]
     Indication: CEREBROVASCULAR DISORDER
     Dosage: 300 MG, 2X/DAY
     Route: 048
     Dates: start: 20111213
  7. SEROQUEL [Concomitant]
     Indication: SCHIZOAFFECTIVE DISORDER
     Dosage: 600 MG, DAILY
     Dates: start: 20080101
  8. CLONIDINE [Concomitant]
     Indication: HYPERTENSION
     Dosage: 0.1 MG, 2X/DAY

REACTIONS (1)
  - ENERGY INCREASED [None]
